FAERS Safety Report 19912348 (Version 3)
Quarter: 2024Q1

REPORT INFORMATION
  Report Type: Spontaneous
  Country: CZ (occurrence: CZ)
  Receive Date: 20211004
  Receipt Date: 20240328
  Transmission Date: 20240409
  Serious: Yes (Other)
  Sender: FDA-Public Use
  Company Number: CZ-EMA-DD-20210924-BISHT_P-171455

PATIENT
  Age: 70 Year
  Sex: Female

DRUGS (12)
  1. OXALIPLATIN [Suspect]
     Active Substance: OXALIPLATIN
     Indication: Oesophageal cancer metastatic
     Dosage: UNK, QCY
     Dates: start: 201803
  2. OXALIPLATIN [Suspect]
     Active Substance: OXALIPLATIN
     Indication: Metastases to liver
  3. FLUOROURACIL [Suspect]
     Active Substance: FLUOROURACIL
     Indication: Oesophageal cancer metastatic
     Dosage: UNK, QCY
     Dates: start: 201803
  4. FLUOROURACIL [Suspect]
     Active Substance: FLUOROURACIL
     Indication: Metastases to liver
  5. DOCETAXEL [Suspect]
     Active Substance: DOCETAXEL\DOCETAXEL ANHYDROUS
     Indication: Oesophageal cancer metastatic
     Dosage: UNK, QCY
     Dates: start: 201803
  6. DOCETAXEL [Suspect]
     Active Substance: DOCETAXEL\DOCETAXEL ANHYDROUS
     Indication: Metastases to liver
     Dosage: 10 MG/KG, QCY(ON DAY 1 OF A 21-DAY CYCLE PRIOR TO DOCETAXEL INFUSION)
     Route: 065
  7. PACLITAXEL [Suspect]
     Active Substance: PACLITAXEL
     Indication: Oesophageal cancer metastatic
     Dosage: 8 MG/KG, QCY(ON DAYS 1 AND 15 OF A 28-DAY CYCLE)
     Route: 065
     Dates: start: 202004
  8. PACLITAXEL [Suspect]
     Active Substance: PACLITAXEL
     Indication: Metastases to liver
  9. LEUCOVORIN [Suspect]
     Active Substance: LEUCOVORIN\LEUCOVORIN CALCIUM
     Indication: Oesophageal cancer metastatic
     Dosage: UNK, QCY
     Dates: start: 201803
  10. LEUCOVORIN [Suspect]
     Active Substance: LEUCOVORIN\LEUCOVORIN CALCIUM
     Indication: Metastases to liver
  11. CYRAMZA [Suspect]
     Active Substance: RAMUCIRUMAB
     Indication: Oesophageal cancer metastatic
     Dosage: 10 MG/ML, QCY(THE 10 ML VIAL CONTAINS 100 MG OF RAMUCIRUMAB AS A CONCENTRATE FOR SOLUTION FOR INFUSI
     Route: 065
     Dates: start: 202004
  12. CYRAMZA [Suspect]
     Active Substance: RAMUCIRUMAB
     Indication: Metastases to liver
     Dosage: 8 MG/KG(EVERY TWO WEEKS)

REACTIONS (9)
  - Spinal fracture [Unknown]
  - Loss of consciousness [Unknown]
  - Anaemia [Unknown]
  - Haematotoxicity [Unknown]
  - Neutropenia [Unknown]
  - Neuropathy peripheral [Unknown]
  - Drug intolerance [Unknown]
  - Fall [Unknown]
  - Off label use [Unknown]

NARRATIVE: CASE EVENT DATE: 20180101
